FAERS Safety Report 8840645 (Version 1)
Quarter: 2012Q4

REPORT INFORMATION
  Report Type: 
  Country: US (occurrence: US)
  Receive Date: 20121015
  Receipt Date: 20121015
  Transmission Date: 20130627
  Serious: Yes (Other)
  Sender: FDA-Public Use
  Company Number: US-PFIZER INC-2012251307

PATIENT
  Sex: Female

DRUGS (2)
  1. ROBITUSSIN [Suspect]
     Dosage: UNK
  2. ZYRTEC [Concomitant]
     Indication: HYPERSENSITIVITY
     Dosage: UNK

REACTIONS (3)
  - Swelling face [Unknown]
  - Lip swelling [Unknown]
  - Oedema mouth [Unknown]
